FAERS Safety Report 8279360 (Version 4)
Quarter: 2012Q4

REPORT INFORMATION
  Report Type: 
  Country: US (occurrence: US)
  Receive Date: 20111208
  Receipt Date: 20121030
  Transmission Date: 20130627
  Serious: Yes (Hospitalization)
  Sender: FDA-Public Use
  Company Number: US-BAYER-2011-114447

PATIENT
  Age: 39 Year
  Sex: Female
  Weight: 73.47 kg

DRUGS (9)
  1. YAZ [Suspect]
     Indication: PREMENSTRUAL DYSPHORIC DISORDER
     Dosage: UNK
     Route: 048
     Dates: start: 200802, end: 200904
  2. ANTI-ASTHMATICS [Concomitant]
  3. XANAX [Concomitant]
  4. CELEXA [Concomitant]
  5. AMBIEN [Concomitant]
  6. NSAID^S [Concomitant]
  7. ALBUTEROL [Concomitant]
     Dosage: Inhaled
     Route: 045
     Dates: start: 20090507
  8. ADVIL [Concomitant]
     Dosage: UNK
     Route: 048
     Dates: start: 20090508
  9. LUNESTA [Concomitant]
     Dosage: UNK
     Route: 048
     Dates: start: 20090506

REACTIONS (3)
  - Pulmonary embolism [None]
  - Deep vein thrombosis [Recovered/Resolved]
  - Chest pain [None]
